FAERS Safety Report 10143231 (Version 1)
Quarter: 2014Q2

REPORT INFORMATION
  Report Type: Spontaneous
  Country: US (occurrence: None)
  Receive Date: 20140429
  Receipt Date: 20140429
  Transmission Date: 20141212
  Serious: No
  Sender: FDA-Public Use
  Company Number: None

PATIENT
  Age: 68 Year
  Sex: Female

DRUGS (1)
  1. XIAFLEX [Suspect]
     Indication: DUPUYTREN^S CONTRACTURE
     Dosage: 1 INJECTION GIVEN INTO/UNDER THE SKIN
     Dates: start: 20131009

REACTIONS (5)
  - Contusion [None]
  - Sensory disturbance [None]
  - Contusion [None]
  - Pain in extremity [None]
  - Muscular weakness [None]
